FAERS Safety Report 12327442 (Version 2)
Quarter: 2016Q2

REPORT INFORMATION
  Report Type: Spontaneous
  Country: US (occurrence: US)
  Receive Date: 20160503
  Receipt Date: 20160616
  Transmission Date: 20160815
  Serious: Yes (Death, Other)
  Sender: FDA-Public Use
  Company Number: US-GLAXOSMITHKLINE-US2016060961

PATIENT
  Sex: Male

DRUGS (1)
  1. VOLTAREN [Suspect]
     Active Substance: DICLOFENAC SODIUM
     Indication: PAIN IN EXTREMITY
     Dosage: UNK, U

REACTIONS (5)
  - Off label use [Unknown]
  - Pain in extremity [Unknown]
  - Condition aggravated [Unknown]
  - Death [Fatal]
  - Drug prescribing error [Unknown]
